FAERS Safety Report 10083760 (Version 3)
Quarter: 2014Q3

REPORT INFORMATION
  Report Type: Spontaneous
  Country: US (occurrence: US)
  Receive Date: 20140417
  Receipt Date: 20140910
  Transmission Date: 20150326
  Serious: Yes (Hospitalization)
  Sender: FDA-Public Use
  Company Number: US-BAYER-2014-055692

PATIENT
  Age: 40 Year
  Sex: Female
  Weight: 56.69 kg

DRUGS (19)
  1. FLUTICASONE PROPIONATE. [Concomitant]
     Active Substance: FLUTICASONE PROPIONATE
     Dosage: 1 TIMES PER DAY
     Dates: start: 20110327
  2. FOLIC ACID. [Concomitant]
     Active Substance: FOLIC ACID
     Dosage: UNK
     Dates: start: 20110504
  3. RELPAX [Concomitant]
     Active Substance: ELETRIPTAN HYDROBROMIDE
     Indication: HEADACHE
     Dosage: 40 MG, 1 TAB QD PRN
     Route: 048
  4. YAZ [Suspect]
     Active Substance: DROSPIRENONE\ETHINYL ESTRADIOL
     Indication: BREAST PAIN
  5. ARTHROTEC [DICLOFENAC SODIUM] [Concomitant]
     Indication: HEADACHE
     Dosage: 50 MG, 1 TAB
     Route: 048
  6. ADVIL [IBUPROFEN] [Concomitant]
     Active Substance: IBUPROFEN
     Indication: HEADACHE
  7. IMITREX [Concomitant]
     Active Substance: SUMATRIPTAN\SUMATRIPTAN SUCCINATE
     Indication: HEADACHE
     Dosage: 100 MG, TABS 1 QD PRN
     Route: 048
  8. ASACOL [Concomitant]
     Active Substance: MESALAMINE
     Dosage: 400 MG, UNK
     Dates: start: 20110306
  9. GIANVI [Suspect]
     Active Substance: DROSPIRENONE\ETHINYL ESTRADIOL
     Indication: BREAST CYST
  10. FLUTICASONE PROPIONATE. [Concomitant]
     Active Substance: FLUTICASONE PROPIONATE
     Dosage: UNK
     Dates: start: 20110504
  11. ZOLPIDEM TARTRATE. [Concomitant]
     Active Substance: ZOLPIDEM TARTRATE
     Indication: SLEEP DISORDER THERAPY
     Dosage: 5 MG, PRN
  12. GIANVI [Suspect]
     Active Substance: DROSPIRENONE\ETHINYL ESTRADIOL
     Indication: BREAST PAIN
     Dosage: UNK
     Dates: start: 20100915, end: 20110505
  13. YAZ [Suspect]
     Active Substance: DROSPIRENONE\ETHINYL ESTRADIOL
     Indication: BREAST CYST
  14. FOLIC ACID. [Concomitant]
     Active Substance: FOLIC ACID
     Dosage: UNK
     Dates: start: 20110306
  15. FLUTICASONE [Concomitant]
     Active Substance: FLUTICASONE\FLUTICASONE PROPIONATE
     Dosage: 50 MC
     Dates: start: 20110327
  16. ASACOL [Concomitant]
     Active Substance: MESALAMINE
     Dosage: 800 MG, TID
     Dates: start: 20110306
  17. ASACOL [Concomitant]
     Active Substance: MESALAMINE
     Dosage: UNK
     Dates: start: 20110421
  18. FOLIC ACID. [Concomitant]
     Active Substance: FOLIC ACID
     Dosage: 1 MG, 1 PILL PER DAY
     Dates: start: 20110405
  19. ZYRTEC [CETIRIZINE HYDROCHLORIDE] [Concomitant]
     Indication: HEADACHE

REACTIONS (6)
  - Vomiting [None]
  - Pain [Recovering/Resolving]
  - Transverse sinus thrombosis [Recovering/Resolving]
  - Off label use [None]
  - Headache [Recovering/Resolving]
  - Injury [Recovering/Resolving]

NARRATIVE: CASE EVENT DATE: 20110505
